FAERS Safety Report 6531784-4 (Version None)
Quarter: 2010Q1

REPORT INFORMATION
  Report Type: 
  Country: None (occurrence: None)
  Receive Date: 20100108
  Receipt Date: 20100106
  Transmission Date: 20100710
  Serious: Yes (Hospitalization)
  Sender: FDA-Public Use
  Company Number: A0838292A

PATIENT
  Age: 71 Year
  Sex: Female

DRUGS (4)
  1. ACYCLOVIR [Suspect]
     Indication: HERPES OPHTHALMIC
     Route: 065
     Dates: start: 20050101, end: 20050203
  2. BACTRIM [Suspect]
     Indication: INFECTION PROPHYLAXIS
     Route: 048
     Dates: start: 20050101, end: 20050203
  3. CYTOXAN [Concomitant]
  4. THYROID MEDICATION [Concomitant]

REACTIONS (2)
  - CHROMATURIA [None]
  - HEPATITIS [None]
